FAERS Safety Report 7198323-9 (Version None)
Quarter: 2010Q4

REPORT INFORMATION
  Report Type: 
  Country: None (occurrence: None)
  Receive Date: 20101227
  Receipt Date: 20101214
  Transmission Date: 20110411
  Serious: Yes (Other)
  Sender: FDA-Public Use
  Company Number: PHHY2010US63752

PATIENT
  Sex: Female
  Weight: 96.599 kg

DRUGS (9)
  1. VALTURNA [Suspect]
     Indication: HYPERTENSION
     Dosage: 300 MG DAILY
     Route: 048
     Dates: start: 20101015
  2. SLOW-FE [Concomitant]
     Indication: THALASSAEMIA
  3. LEVOTHYROXINE [Concomitant]
     Dosage: 0.025 MG DAILY
     Route: 048
  4. SIMVASTATIN [Concomitant]
     Dosage: 20 MG DAILY
     Route: 048
  5. CLONIDINE [Concomitant]
     Dosage: 1 MG
  6. KLOR-CON [Concomitant]
     Dosage: 10 MEQ
     Route: 048
  7. LASIX [Concomitant]
     Dosage: 40 MG DAILY
     Route: 048
  8. PROTONIX [Concomitant]
     Dosage: 40 MG
  9. DETROL [Concomitant]
     Dosage: 4 MG DAILY
     Route: 048

REACTIONS (5)
  - BLOOD CREATININE INCREASED [None]
  - FULL BLOOD COUNT DECREASED [None]
  - LIP DRY [None]
  - RHINORRHOEA [None]
  - THALASSAEMIA [None]
